FAERS Safety Report 4956987-1 (Version None)
Quarter: 2006Q1

REPORT INFORMATION
  Report Type: 
  Country: None (occurrence: None)
  Receive Date: 20060127
  Receipt Date: 20041103
  Transmission Date: 20060701
  Serious: Yes (Death)
  Sender: FDA-Public Use
  Company Number: 04-11-1537

PATIENT
  Age: 46 Year
  Sex: Female

DRUGS (1)
  1. CLOZAPINE [Suspect]
     Dosage: 400-600MG QD, ORAL
     Route: 048
     Dates: start: 20000201, end: 20040901

REACTIONS (1)
  - UNEVALUABLE EVENT [None]
